FAERS Safety Report 5697898-6 (Version None)
Quarter: 2008Q2

REPORT INFORMATION
  Report Type: 
  Country: None (occurrence: None)
  Receive Date: 20080408
  Receipt Date: 20080328
  Transmission Date: 20081010
  Serious: No
  Sender: FDA-Public Use
  Company Number: US-PFIZER INC-2008025080

PATIENT
  Sex: Female

DRUGS (6)
  1. VISTARIL (IM) [Suspect]
  2. MORPHINE [Suspect]
  3. HYDROCHLOROTHIAZIDE [Concomitant]
     Indication: BLOOD PRESSURE
  4. LISINOPRIL [Concomitant]
     Indication: BLOOD PRESSURE
  5. LEVOTHYROXINE SODIUM [Concomitant]
     Indication: THYROID DISORDER
  6. XANAX [Concomitant]
     Indication: PANIC ATTACK

REACTIONS (1)
  - NO ADVERSE EVENT [None]
